FAERS Safety Report 17564295 (Version 1)
Quarter: 2020Q1

REPORT INFORMATION
  Report Type: Spontaneous
  Country: FR (occurrence: FR)
  Receive Date: 20200320
  Receipt Date: 20200320
  Transmission Date: 20200409
  Serious: Yes (Death, Other)
  Sender: FDA-Public Use
  Company Number: FR-MICRO LABS LIMITED-ML2020-00752

PATIENT
  Age: 80 Year
  Sex: Female

DRUGS (2)
  1. FLUINDIONE [Suspect]
     Active Substance: FLUINDIONE
  2. TRAMADOL/PARACETAMOL [Suspect]
     Active Substance: ACETAMINOPHEN\TRAMADOL

REACTIONS (2)
  - Drug interaction [Fatal]
  - Gastrointestinal haemorrhage [Fatal]
